FAERS Safety Report 13583318 (Version 1)
Quarter: 2017Q2

REPORT INFORMATION
  Report Type: Spontaneous
  Country: GB (occurrence: GB)
  Receive Date: 20170525
  Receipt Date: 20170525
  Transmission Date: 20170830
  Serious: Yes (Hospitalization)
  Sender: FDA-Public Use
  Company Number: GB-MYLANLABS-2017M1030400

PATIENT

DRUGS (8)
  1. TIOTROPIUM [Concomitant]
     Active Substance: TIOTROPIUM
  2. ATORVASTATIN [Concomitant]
     Active Substance: ATORVASTATIN
  3. CARBOCYSTEINE [Concomitant]
     Active Substance: CARBOCYSTEINE
  4. ESOMEPRAZOLE [Suspect]
     Active Substance: ESOMEPRAZOLE
     Dates: end: 201705
  5. ASPIRIN. [Concomitant]
     Active Substance: ASPIRIN
  6. TILDIEM [Concomitant]
     Active Substance: DILTIAZEM HYDROCHLORIDE
  7. FOSTAIR [Concomitant]
     Active Substance: BECLOMETHASONE\FORMOTEROL
  8. PREDNISOLONE. [Suspect]
     Active Substance: PREDNISOLONE
     Dates: end: 201705

REACTIONS (5)
  - Dyspnoea [Unknown]
  - Chest pain [Unknown]
  - Pleuritic pain [Unknown]
  - Productive cough [Unknown]
  - Hyponatraemia [Recovering/Resolving]

NARRATIVE: CASE EVENT DATE: 20170506
